FAERS Safety Report 13368229 (Version 1)
Quarter: 2017Q1

REPORT INFORMATION
  Report Type: Spontaneous
  Country: NO (occurrence: NO)
  Receive Date: 20170324
  Receipt Date: 20170324
  Transmission Date: 20170429
  Serious: Yes (Death, Other)
  Sender: FDA-Public Use
  Company Number: NO-PFIZER INC-2017124295

PATIENT
  Age: 62 Year
  Sex: Female

DRUGS (22)
  1. DOXORUBICIN HCL [Suspect]
     Active Substance: DOXORUBICIN HYDROCHLORIDE
     Dosage: 5 CHOP REGIMENS
     Route: 065
  2. VINCRISTINE [Suspect]
     Active Substance: VINCRISTINE
     Dosage: 5 CHOP REGIMENS
     Route: 065
  3. FRAGMIN [Suspect]
     Active Substance: DALTEPARIN SODIUM
     Dosage: UNK
     Route: 065
  4. SENDOXAN [Suspect]
     Active Substance: CYCLOPHOSPHAMIDE
     Dosage: 1000 MG, UNK
  5. LACTULOSE. [Concomitant]
     Active Substance: LACTULOSE
     Route: 065
  6. SOMAC [Concomitant]
     Active Substance: PANTOPRAZOLE SODIUM
     Route: 065
  7. SENDOXAN [Suspect]
     Active Substance: CYCLOPHOSPHAMIDE
     Dosage: 1000 MG, CYCLIC (5 CHOP REGIMENS)
     Route: 065
  8. BACTRIM [Concomitant]
     Active Substance: SULFAMETHOXAZOLE\TRIMETHOPRIM
     Route: 065
  9. CYTARABINE. [Suspect]
     Active Substance: CYTARABINE
     Indication: ANGIOIMMUNOBLASTIC T-CELL LYMPHOMA STAGE IV
     Dosage: 180 MG, ALTERNATE DAY
     Route: 041
     Dates: start: 20161011, end: 20161014
  10. VALTREX [Concomitant]
     Active Substance: VALACYCLOVIR HYDROCHLORIDE
     Route: 065
  11. DOXORUBICIN HCL [Suspect]
     Active Substance: DOXORUBICIN HYDROCHLORIDE
     Dosage: 1ST CHOP
     Route: 065
  12. VINCRISTINE [Suspect]
     Active Substance: VINCRISTINE
     Dosage: 11 CHOEP
     Route: 065
  13. CARMUSTINE [Suspect]
     Active Substance: CARMUSTINE
     Indication: ANGIOIMMUNOBLASTIC T-CELL LYMPHOMA STAGE IV
     Dosage: 540 MG, UNK (HIGH-DOSE BEAC, BRAC HIGH-DOSE TREATMENT )
     Route: 041
     Dates: start: 20161010, end: 20161010
  14. PREDNISONE. [Suspect]
     Active Substance: PREDNISONE
     Dosage: 5 CHOP REGIMENS
     Route: 065
  15. SENDOXAN [Suspect]
     Active Substance: CYCLOPHOSPHAMIDE
     Dosage: 1 CHOEP
     Route: 065
  16. PREDNISONE. [Suspect]
     Active Substance: PREDNISONE
     Dosage: 1 CHOEP
     Route: 065
  17. SENDOXAN [Suspect]
     Active Substance: CYCLOPHOSPHAMIDE
     Indication: ANGIOIMMUNOBLASTIC T-CELL LYMPHOMA STAGE IV
     Dosage: HIGH-DOSE BEAC
     Route: 041
     Dates: start: 20161011, end: 20161015
  18. TAZOCIN [Concomitant]
     Active Substance: PIPERACILLIN SODIUM\TAZOBACTAM SODIUM
     Route: 065
  19. DIFLUCAN [Concomitant]
     Active Substance: FLUCONAZOLE
     Route: 065
  20. MEROPENEM. [Concomitant]
     Active Substance: MEROPENEM
     Route: 065
  21. DOXORUBICIN HCL [Suspect]
     Active Substance: DOXORUBICIN HYDROCHLORIDE
     Indication: ANGIOIMMUNOBLASTIC T-CELL LYMPHOMA STAGE IV
     Dosage: 1 CHOEP
     Route: 065
  22. ETOPOSIDE. [Suspect]
     Active Substance: ETOPOSIDE
     Indication: ANGIOIMMUNOBLASTIC T-CELL LYMPHOMA STAGE IV
     Dosage: 180 MG, ALTERNATE DAY (HIGH-DOSE BEAC, BRAC HIGH DOSE 1 CHOEP )
     Route: 041
     Dates: start: 20161011, end: 20161014

REACTIONS (4)
  - Pulmonary oedema [Unknown]
  - Cardiomyopathy acute [Fatal]
  - Cardiac failure [Fatal]
  - Intra-abdominal haemorrhage [Unknown]

NARRATIVE: CASE EVENT DATE: 20161024
